FAERS Safety Report 4642278-5 (Version None)
Quarter: 2005Q2

REPORT INFORMATION
  Report Type: 
  Country: None (occurrence: None)
  Receive Date: 20050421
  Receipt Date: 20050421
  Transmission Date: 20051028
  Serious: Yes (Death)
  Sender: FDA-Public Use
  Company Number: None

PATIENT
  Age: 56 Year
  Sex: Male

DRUGS (1)
  1. ANAPROX DS [Suspect]
     Indication: MUSCLE STRAIN
     Dosage: ONE PO BID
     Route: 048
     Dates: start: 19950812, end: 19950814

REACTIONS (1)
  - MYOCARDIAL INFARCTION [None]
